FAERS Safety Report 15202708 (Version 1)
Quarter: 2018Q3

REPORT INFORMATION
  Report Type: Spontaneous
  Country: DE (occurrence: DE)
  Receive Date: 20180726
  Receipt Date: 20180726
  Transmission Date: 20181010
  Serious: Yes (Death)
  Sender: FDA-Public Use
  Company Number: DE-MYLANLABS-2018M1054656

PATIENT
  Age: 71 Year
  Sex: Female

DRUGS (4)
  1. OLANZAPINE. [Suspect]
     Active Substance: OLANZAPINE
     Indication: PRODUCT USED FOR UNKNOWN INDICATION
     Route: 065
  2. PROTHIPENDYL HYDROCHLORIDE [Interacting]
     Active Substance: PROTHIPENDYL HYDROCHLORIDE
     Indication: PRODUCT USED FOR UNKNOWN INDICATION
     Dosage: 80MG ADMINISTERED THE PREVIOUS DAY AND TWO DAYS BEFORE HER DISCOVERY, BOTH DOSES AT 11 P.M
     Route: 065
  3. MELPERONE [Concomitant]
     Active Substance: MELPERONE
     Indication: PRODUCT USED FOR UNKNOWN INDICATION
     Dosage: REGULAR MEDICATION
     Route: 065
  4. METAMIZOLE [Concomitant]
     Active Substance: METAMIZOLE
     Indication: PRODUCT USED FOR UNKNOWN INDICATION
     Dosage: REGULAR MEDICATION
     Route: 065

REACTIONS (4)
  - Cardiotoxicity [Fatal]
  - Pulmonary oedema [Fatal]
  - Drug interaction [Fatal]
  - Brain oedema [Fatal]
